FAERS Safety Report 16730785 (Version 1)
Quarter: 2019Q4

REPORT INFORMATION
  Report Type: Spontaneous
  Country: US (occurrence: US)
  Receive Date: 20190822
  Receipt Date: 20190822
  Transmission Date: 20200122
  Serious: Yes (Disabling)
  Sender: FDA-Public Use
  Company Number: None

PATIENT
  Age: 40 Year
  Sex: Female
  Weight: 53.1 kg

DRUGS (24)
  1. BOSWELLA [Concomitant]
  2. PROBIOTIC [Concomitant]
     Active Substance: PROBIOTICS NOS
  3. PHENERGAN [Concomitant]
     Active Substance: PROMETHAZINE HYDROCHLORIDE
  4. MAXALT [Concomitant]
     Active Substance: RIZATRIPTAN BENZOATE
  5. ZANAFLEX [Concomitant]
     Active Substance: TIZANIDINE HYDROCHLORIDE
  6. OIL OF OREGANO [Concomitant]
  7. ALEVEL [Concomitant]
  8. VIT D + K [Concomitant]
  9. AJOVY [Suspect]
     Active Substance: FREMANEZUMAB-VFRM
     Indication: MIGRAINE PROPHYLAXIS
     Dates: start: 20190624, end: 20190624
  10. ZYRTEC [Concomitant]
     Active Substance: CETIRIZINE HYDROCHLORIDE
  11. SINGULAIR [Concomitant]
     Active Substance: MONTELUKAST SODIUM
  12. BENADRYL [Concomitant]
     Active Substance: DIPHENHYDRAMINE HYDROCHLORIDE
  13. ULTRAM [Concomitant]
     Active Substance: TRAMADOL HYDROCHLORIDE
  14. COMPAZINE [Concomitant]
     Active Substance: PROCHLORPERAZINE MALEATE
  15. VITAMIN B-COMPLEX [Concomitant]
     Active Substance: DEXPANTHENOL\NIACINAMIDE\PYRIDOXINE HYDROCHLORIDE\RIBOFLAVIN 5^-PHOSPHATE SODIUM\THIAMINE HYDROCHLORIDE
  16. ZANTAC [Concomitant]
     Active Substance: RANITIDINE HYDROCHLORIDE
  17. FISH OIL [Concomitant]
     Active Substance: FISH OIL
  18. MITOCORE [Concomitant]
  19. DIGESTIVE ENZYMES [Concomitant]
     Active Substance: UNSPECIFIED INGREDIENT
  20. PREDNISONE. [Concomitant]
     Active Substance: PREDNISONE
  21. MAGNESIUM [Concomitant]
     Active Substance: MAGNESIUM
  22. NORCO [Concomitant]
     Active Substance: ACETAMINOPHEN\HYDROCODONE BITARTRATE
  23. ALBUTEROL HFA [Concomitant]
     Active Substance: ALBUTEROL SULFATE
  24. KRATOM [Concomitant]
     Active Substance: HERBALS\MITRAGYNINE

REACTIONS (15)
  - Migraine [None]
  - Pyrexia [None]
  - Muscle spasms [None]
  - Leukocytosis [None]
  - Fatigue [None]
  - Constipation [None]
  - Abdominal discomfort [None]
  - Disturbance in attention [None]
  - Lymphocytosis [None]
  - Temperature intolerance [None]
  - Myalgia [None]
  - Tachycardia [None]
  - Night sweats [None]
  - Arthralgia [None]
  - Memory impairment [None]

NARRATIVE: CASE EVENT DATE: 20190624
